FAERS Safety Report 6172733-0 (Version None)
Quarter: 2009Q2

REPORT INFORMATION
  Report Type: 
  Country: None (occurrence: None)
  Receive Date: 20090430
  Receipt Date: 20090423
  Transmission Date: 20091009
  Serious: Yes (Hospitalization)
  Sender: FDA-Public Use
  Company Number: US-BIOGENIDEC-2008BI015784

PATIENT
  Age: 30 Year
  Sex: Female
  Weight: 102 kg

DRUGS (9)
  1. TYSABRI [Suspect]
     Indication: MULTIPLE SCLEROSIS
     Route: 042
     Dates: start: 20080513
  2. SERTRALINE HCL [Concomitant]
     Route: 048
  3. SERTRALINE HCL [Concomitant]
     Route: 048
  4. DOXEPIN HCL [Concomitant]
     Route: 048
  5. BACLOFEN [Concomitant]
     Route: 048
  6. ZANTAC [Concomitant]
     Route: 048
  7. LYRICA [Concomitant]
     Route: 048
  8. PROVIGIL [Concomitant]
  9. REBIF [Concomitant]

REACTIONS (1)
  - DEEP VEIN THROMBOSIS [None]
